FAERS Safety Report 20646176 (Version 1)
Quarter: 2022Q1

REPORT INFORMATION
  Report Type: Spontaneous
  Country: CN (occurrence: CN)
  Receive Date: 20220329
  Receipt Date: 20220329
  Transmission Date: 20220423
  Serious: Yes (Hospitalization, Other)
  Sender: FDA-Public Use
  Company Number: CN-ABBVIE-22K-035-4335140-00

PATIENT
  Age: 71 Year
  Sex: Male
  Weight: 65 kg

DRUGS (4)
  1. VALPROATE SODIUM [Suspect]
     Active Substance: VALPROATE SODIUM
     Indication: Affective disorder
     Dosage: ONE OR TWO IN ONE DAY
     Route: 048
     Dates: start: 20200525, end: 20200628
  2. QUETIAPINE FUMARATE [Suspect]
     Active Substance: QUETIAPINE FUMARATE
     Indication: Affective disorder
     Dosage: 75 MG TWO IN ONE DAY OR 25 MG EVERY NIGHT
     Route: 048
     Dates: start: 20200525, end: 20200707
  3. BEI LAI [Concomitant]
     Indication: Productive cough
     Dates: start: 20200603, end: 20200707
  4. IRON POLYSACCHARIDE COMPLEX [Concomitant]
     Indication: Anaemia
     Dates: start: 20200525, end: 20200707

REACTIONS (2)
  - Granulocytopenia [Recovering/Resolving]
  - Platelet count decreased [Recovering/Resolving]

NARRATIVE: CASE EVENT DATE: 20200628
